FAERS Safety Report 20196104 (Version 13)
Quarter: 2022Q2

REPORT INFORMATION
  Report Type: Spontaneous
  Country: PL (occurrence: PL)
  Receive Date: 20211216
  Receipt Date: 20220630
  Transmission Date: 20220720
  Serious: Yes (Hospitalization, Other)
  Sender: FDA-Public Use
  Company Number: PL-002147023-NVSC2021PL267813

PATIENT
  Age: 71 Year
  Sex: Male

DRUGS (56)
  1. APIXABAN [Suspect]
     Active Substance: APIXABAN
     Indication: Cerebrovascular accident prophylaxis
     Dosage: 5 MILLIGRAM, BID
     Route: 065
  2. ATORVASTATIN CALCIUM [Suspect]
     Active Substance: ATORVASTATIN CALCIUM
     Dosage: 10 MG, QD  (TABLET)
     Route: 065
  3. SILDENAFIL CITRATE [Suspect]
     Active Substance: SILDENAFIL CITRATE
     Dosage: 50 MILLIGRAM (TABLET)
     Route: 065
     Dates: start: 201804
  4. SILDENAFIL CITRATE [Suspect]
     Active Substance: SILDENAFIL CITRATE
     Dosage: 50 MILLIGRAM (TABLET)
     Route: 065
     Dates: start: 201905
  5. SILDENAFIL CITRATE [Suspect]
     Active Substance: SILDENAFIL CITRATE
     Dosage: 50 MILLIGRAM (TABLET)
     Route: 065
     Dates: start: 202101
  6. SILDENAFIL CITRATE [Suspect]
     Active Substance: SILDENAFIL CITRATE
     Dosage: 50 MILLIGRAM (TABLET)
     Route: 065
     Dates: start: 202103
  7. LEVOTHYROXINE [Suspect]
     Active Substance: LEVOTHYROXINE
     Dosage: UNK, QD (N50)
     Route: 065
  8. LEVOTHYROXINE [Suspect]
     Active Substance: LEVOTHYROXINE
     Dosage: UNK, QD (N50)
     Route: 065
  9. EMPAGLIFLOZIN [Suspect]
     Active Substance: EMPAGLIFLOZIN
     Dosage: 10 MG, QD
     Route: 065
     Dates: start: 201804
  10. SACUBITRIL\VALSARTAN [Suspect]
     Active Substance: SACUBITRIL\VALSARTAN
     Indication: Cardiac failure
     Dosage: 100 MG, QD
     Route: 065
     Dates: start: 201804
  11. SACUBITRIL\VALSARTAN [Suspect]
     Active Substance: SACUBITRIL\VALSARTAN
     Dosage: 100 MILLIGRAM, QD
     Route: 065
     Dates: start: 201905
  12. SACUBITRIL\VALSARTAN [Suspect]
     Active Substance: SACUBITRIL\VALSARTAN
     Dosage: 200 MILLIGRAM, QD
     Route: 065
     Dates: start: 202101
  13. SACUBITRIL\VALSARTAN [Suspect]
     Active Substance: SACUBITRIL\VALSARTAN
     Dosage: 200 MILLIGRAM, QD
     Route: 065
     Dates: start: 202103
  14. SACUBITRIL\VALSARTAN [Suspect]
     Active Substance: SACUBITRIL\VALSARTAN
     Dosage: 100 MG, QD
     Route: 065
     Dates: start: 202107
  15. SACUBITRIL\VALSARTAN [Suspect]
     Active Substance: SACUBITRIL\VALSARTAN
     Dosage: 100 MILLIGRAM, QD
     Route: 065
     Dates: start: 202109
  16. SACUBITRIL\VALSARTAN [Suspect]
     Active Substance: SACUBITRIL\VALSARTAN
     Dosage: 0.5 DF, BID (49MG/51MG)
     Route: 065
  17. SACUBITRIL\VALSARTAN [Suspect]
     Active Substance: SACUBITRIL\VALSARTAN
     Dosage: 1 ATU 1 ATU 0.5 DF, BID (49MG/51MG)
     Route: 065
     Dates: start: 202109
  18. SACUBITRIL\VALSARTAN [Suspect]
     Active Substance: SACUBITRIL\VALSARTAN
     Dosage: 0.5 DF, BID (49MG/51MG)
     Route: 065
  19. HYDROCHLOROTHIAZIDE [Suspect]
     Active Substance: HYDROCHLOROTHIAZIDE
     Dosage: 25 MILLIGRAM, QD
     Route: 065
     Dates: start: 201804
  20. HYDROCHLOROTHIAZIDE [Suspect]
     Active Substance: HYDROCHLOROTHIAZIDE
     Dosage: 25 MILLIGRAM, QD
     Route: 065
     Dates: start: 201905
  21. HYDROCHLOROTHIAZIDE [Suspect]
     Active Substance: HYDROCHLOROTHIAZIDE
     Dosage: 25 MILLIGRAM, QD
     Route: 065
     Dates: start: 202101
  22. ALLOPURINOL [Suspect]
     Active Substance: ALLOPURINOL
     Dosage: UNK
     Route: 065
  23. ALLOPURINOL [Suspect]
     Active Substance: ALLOPURINOL
     Dosage: UNK
  24. SPIRONOLACTONE [Suspect]
     Active Substance: SPIRONOLACTONE
     Dosage: 100 MILLIGRAM, QD
     Route: 065
     Dates: start: 201804
  25. SPIRONOLACTONE [Suspect]
     Active Substance: SPIRONOLACTONE
     Dosage: 100 MILLIGRAM, QD
     Route: 065
     Dates: start: 201905
  26. SPIRONOLACTONE [Suspect]
     Active Substance: SPIRONOLACTONE
     Dosage: 100 MILLIGRAM, QD
     Route: 065
     Dates: start: 202101
  27. SPIRONOLACTONE [Suspect]
     Active Substance: SPIRONOLACTONE
     Dosage: 50 MILLIGRAM, QD
     Route: 065
     Dates: start: 202103
  28. CARVEDILOL [Suspect]
     Active Substance: CARVEDILOL
     Dosage: 6.25 MILLIGRAM, QD
     Route: 065
     Dates: start: 201804
  29. CARVEDILOL [Suspect]
     Active Substance: CARVEDILOL
     Dosage: 6.25 MILLIGRAM, QD
     Route: 065
     Dates: start: 201905
  30. CARVEDILOL [Suspect]
     Active Substance: CARVEDILOL
     Dosage: 13 MILLIGRAM, QD
     Route: 065
     Dates: start: 202101
  31. CARVEDILOL [Suspect]
     Active Substance: CARVEDILOL
     Dosage: 13 MILLIGRAM, QD
     Route: 065
     Dates: start: 202103
  32. CARVEDILOL [Suspect]
     Active Substance: CARVEDILOL
     Dosage: 13 MILLIGRAM, QD
     Route: 065
     Dates: start: 202107
  33. CARVEDILOL [Suspect]
     Active Substance: CARVEDILOL
     Dosage: 13 MILLIGRAM, QD
     Route: 065
     Dates: start: 202109
  34. CARVEDILOL [Suspect]
     Active Substance: CARVEDILOL
     Dosage: 12.5 MILLIGRAM, QD
     Route: 065
  35. CARVEDILOL [Suspect]
     Active Substance: CARVEDILOL
     Dosage: 13 MG, QD
     Route: 065
     Dates: start: 202109
  36. CARVEDILOL [Suspect]
     Active Substance: CARVEDILOL
     Dosage: 12.5 MILLIGRAM, QD
     Route: 065
  37. DAPAGLIFLOZIN [Suspect]
     Active Substance: DAPAGLIFLOZIN
     Dosage: 10 MG, QD
     Route: 065
     Dates: start: 202107
  38. DAPAGLIFLOZIN [Suspect]
     Active Substance: DAPAGLIFLOZIN
     Dosage: 10 MG, QD
     Route: 065
     Dates: start: 202109
  39. DAPAGLIFLOZIN [Suspect]
     Active Substance: DAPAGLIFLOZIN
     Dosage: 10 MG, QD
     Route: 065
     Dates: start: 202109
  40. DAPAGLIFLOZIN [Suspect]
     Active Substance: DAPAGLIFLOZIN
     Dosage: 10 MILLIGRAM, QD
     Route: 065
  41. DAPAGLIFLOZIN [Suspect]
     Active Substance: DAPAGLIFLOZIN
     Dosage: 10 MILLIGRAM, QD
     Route: 065
  42. DIGOXIN [Suspect]
     Active Substance: DIGOXIN
     Dosage: 0.1 MILLIGRAM, QD
     Route: 065
  43. TORSEMIDE [Suspect]
     Active Substance: TORSEMIDE
     Dosage: 10 MILLIGRAM, QD (1 TABLET IN THE EVENING)
     Route: 065
  44. TORSEMIDE [Suspect]
     Active Substance: TORSEMIDE
     Dosage: 5 MG, QD
     Route: 065
     Dates: start: 202107
  45. TORSEMIDE [Suspect]
     Active Substance: TORSEMIDE
     Dosage: 10 MILLIGRAM, QD
     Route: 065
     Dates: start: 202109
  46. TORSEMIDE [Suspect]
     Active Substance: TORSEMIDE
     Dosage: 10 MILLIGRAM, QD (1 TABLET IN THE EVENING)
     Route: 065
  47. TORSEMIDE [Suspect]
     Active Substance: TORSEMIDE
     Dosage: 10 MILLIGRAM, QD
     Route: 065
     Dates: start: 202109
  48. FUROSEMIDE [Suspect]
     Active Substance: FUROSEMIDE
     Dosage: 120 MILLIGRAM, QD
     Route: 065
     Dates: start: 201804
  49. FUROSEMIDE [Suspect]
     Active Substance: FUROSEMIDE
     Dosage: 200 MILLIGRAM, QD
     Route: 065
     Dates: start: 201905
  50. FUROSEMIDE [Suspect]
     Active Substance: FUROSEMIDE
     Dosage: 160 MILLIGRAM, QD
     Route: 065
     Dates: start: 202101
  51. FUROSEMIDE [Suspect]
     Active Substance: FUROSEMIDE
     Dosage: 80 MILLIGRAM, QD
     Route: 065
     Dates: start: 202103
  52. FUROSEMIDE [Suspect]
     Active Substance: FUROSEMIDE
     Dosage: 40 MILLIGRAM, QD
     Route: 065
     Dates: start: 202107
  53. FUROSEMIDE [Suspect]
     Active Substance: FUROSEMIDE
     Dosage: 40 MG, QD (1 TABLET IN THE MORNING)
     Route: 065
  54. FUROSEMIDE [Suspect]
     Active Substance: FUROSEMIDE
     Dosage: 40 MILLIGRAM, QD
     Route: 065
     Dates: start: 202109
  55. FUROSEMIDE [Suspect]
     Active Substance: FUROSEMIDE
     Dosage: 40 MILLIGRAM, QD (1 TABLET IN THE MORNING)
     Route: 065
  56. FUROSEMIDE [Suspect]
     Active Substance: FUROSEMIDE
     Dosage: 40 MILLIGRAM, QD
     Route: 065

REACTIONS (7)
  - Cardiac failure [Unknown]
  - Acute kidney injury [Unknown]
  - Glomerular filtration rate abnormal [Unknown]
  - Congestive cardiomyopathy [Unknown]
  - N-terminal prohormone brain natriuretic peptide increased [Unknown]
  - Wrong technique in product usage process [Unknown]
  - Lung disorder [Unknown]

NARRATIVE: CASE EVENT DATE: 20210301
